FAERS Safety Report 8442576-3 (Version None)
Quarter: 2012Q2

REPORT INFORMATION
  Report Type: 
  Country: None (occurrence: None)
  Receive Date: 20120615
  Receipt Date: 20120312
  Transmission Date: 20120825
  Serious: No
  Sender: FDA-Public Use
  Company Number: DE-FOUGERA-2012FO001026

PATIENT
  Age: 35 Month
  Sex: Male
  Weight: 14.97 kg

DRUGS (1)
  1. HYDROCORTISONE [Suspect]
     Indication: ECZEMA

REACTIONS (1)
  - ACCIDENTAL EXPOSURE [None]
